FAERS Safety Report 16199624 (Version 2)
Quarter: 2019Q2

REPORT INFORMATION
  Report Type: Spontaneous
  Country: US (occurrence: US)
  Receive Date: 20190415
  Receipt Date: 20190509
  Transmission Date: 20190711
  Serious: Yes (Other)
  Sender: FDA-Public Use
  Company Number: PHEH2019US015527

PATIENT
  Age: 56 Year
  Sex: Female
  Weight: 123.81 kg

DRUGS (1)
  1. ENTRESTO [Suspect]
     Active Substance: SACUBITRIL\VALSARTAN
     Indication: PRODUCT USED FOR UNKNOWN INDICATION
     Dosage: 50 MG, BID (24/26)
     Route: 048
     Dates: start: 20190312

REACTIONS (3)
  - Hyperglycaemic hyperosmolar nonketotic syndrome [Recovering/Resolving]
  - Fatigue [Unknown]
  - Headache [Not Recovered/Not Resolved]

NARRATIVE: CASE EVENT DATE: 20190312
